FAERS Safety Report 5014502-0 (Version None)
Quarter: 2006Q2

REPORT INFORMATION
  Report Type: 
  Country: None (occurrence: None)
  Receive Date: 20060531
  Receipt Date: 20040608
  Transmission Date: 20061013
  Serious: Yes (Death, Life-Threatening)
  Sender: FDA-Public Use
  Company Number: GB-AMGEN-UK079734

PATIENT
  Sex: Female
  Weight: 65 kg

DRUGS (12)
  1. KINERET [Suspect]
     Indication: RHEUMATOID ARTHRITIS
     Dates: start: 20030215, end: 20030715
  2. METHOTREXATE [Concomitant]
     Route: 065
  3. PREDNISOLONE [Concomitant]
     Route: 065
  4. LITHIUM CARBONATE [Concomitant]
     Route: 065
  5. MORPHINE [Concomitant]
     Route: 065
  6. CO-PROXAMOL [Concomitant]
     Route: 065
  7. ISONIAZID [Concomitant]
     Route: 065
  8. HORMONE NOS [Concomitant]
     Route: 065
  9. NITROGLYCERIN [Concomitant]
     Route: 065
  10. CYCLOPHOSPHAMIDE [Concomitant]
     Route: 065
  11. RITUXIMAB [Concomitant]
     Route: 065
  12. PREDNISONE [Concomitant]
     Route: 065

REACTIONS (2)
  - METASTASES TO PLEURA [None]
  - OVARIAN CANCER METASTATIC [None]
